FAERS Safety Report 5091922-X (Version None)
Quarter: 2006Q3

REPORT INFORMATION
  Report Type: 
  Country: None (occurrence: None)
  Receive Date: 20060824
  Receipt Date: 20060815
  Transmission Date: 20061208
  Serious: Yes (Death, Other)
  Sender: FDA-Public Use
  Company Number: 083-20785-06080666

PATIENT

DRUGS (4)
  1. THALOMID [Suspect]
     Indication: MULTIPLE MYELOMA
     Dosage: 200 MG, ORAL
     Route: 048
  2. DEXAMETHASONE TAB [Suspect]
     Indication: MULTIPLE MYELOMA
     Dosage: 20 MG, DAYS -6 THROUGH -3
  3. MELPHALAN(MELPHALAN) [Suspect]
     Indication: MULTIPLE MYELOMA
     Dosage: 50 MG/M2, DAYS -6 AND -3
  4. BORTEZOMIB (BORTEZOMIB) [Suspect]
     Indication: MULTIPLE MYELOMA
     Dosage: 1.3 MG/M2, DAYS -6 AND -3

REACTIONS (7)
  - ANAEMIA [None]
  - DISEASE PROGRESSION [None]
  - FEBRILE NEUTROPENIA [None]
  - NEUROTOXICITY [None]
  - NEUTROPENIA [None]
  - PNEUMONIA [None]
  - THROMBOCYTOPENIA [None]
